FAERS Safety Report 5893358-8 (Version None)
Quarter: 2008Q3

REPORT INFORMATION
  Report Type: 
  Country: None (occurrence: None)
  Receive Date: 20080922
  Receipt Date: 20080922
  Transmission Date: 20090109
  Serious: Yes (Other)
  Sender: FDA-Public Use
  Company Number: None

PATIENT
  Age: 20 Year
  Sex: Female
  Weight: 82.6 kg

DRUGS (1)
  1. OXYTOCIN [Suspect]
     Indication: CAESAREAN SECTION
     Dosage: 125 ML/HR ONCE IV DRIP
     Route: 041
     Dates: start: 20080918, end: 20080918

REACTIONS (2)
  - BLOOD PRESSURE INCREASED [None]
  - CHILLS [None]
